FAERS Safety Report 21264365 (Version 1)
Quarter: 2022Q3

REPORT INFORMATION
  Report Type: Spontaneous
  Country: US (occurrence: None)
  Receive Date: 20220826
  Receipt Date: 20220826
  Transmission Date: 20221026
  Serious: Yes (Hospitalization)
  Sender: FDA-Public Use
  Company Number: None

PATIENT
  Age: 63 Year
  Sex: Female
  Weight: 102.7 kg

DRUGS (1)
  1. TAXOL [Suspect]
     Active Substance: PACLITAXEL
     Dates: end: 20220429

REACTIONS (8)
  - Lymphocyte count increased [None]
  - Pneumonia [None]
  - Hypokalaemia [None]
  - Hypertension [None]
  - Hypercalcaemia [None]
  - Nausea [None]
  - Vomiting [None]
  - Pneumonia [None]

NARRATIVE: CASE EVENT DATE: 20220630
